FAERS Safety Report 4913596-8 (Version None)
Quarter: 2006Q1

REPORT INFORMATION
  Report Type: 
  Country: None (occurrence: None)
  Receive Date: 20060214
  Receipt Date: 20060214
  Transmission Date: 20060701
  Serious: Yes (Life-Threatening, Hospitalization)
  Sender: FDA-Public Use
  Company Number: None

PATIENT
  Age: 51 Year
  Sex: Female

DRUGS (2)
  1. HUMIRA 40 MG ABBOTT [Suspect]
     Indication: RHEUMATOID ARTHRITIS
     Dosage: 40 MG EVERY OTHER WEEK SQ
     Route: 058
     Dates: start: 20060127, end: 20060127
  2. MOBIC [Concomitant]

REACTIONS (4)
  - HEADACHE [None]
  - INJECTION SITE RASH [None]
  - INJECTION SITE URTICARIA [None]
  - STEVENS-JOHNSON SYNDROME [None]
